FAERS Safety Report 18268230 (Version 1)
Quarter: 2020Q3

REPORT INFORMATION
  Report Type: Spontaneous
  Country: US (occurrence: US)
  Receive Date: 20200915
  Receipt Date: 20200915
  Transmission Date: 20201103
  Serious: No
  Sender: FDA-Public Use
  Company Number: US-PERRIGO-19US011809

PATIENT
  Weight: 56.69 kg

DRUGS (2)
  1. TESTOSTERONE. [Suspect]
     Active Substance: TESTOSTERONE
     Dosage: UNKNOWN, QD
     Route: 061
     Dates: start: 20190927
  2. TESTOSTERONE. [Suspect]
     Active Substance: TESTOSTERONE
     Indication: GENDER DYSPHORIA
     Dosage: 101.25 MG, QD
     Route: 061
     Dates: start: 2019, end: 20190926

REACTIONS (1)
  - Off label use [Unknown]

NARRATIVE: CASE EVENT DATE: 2019
